FAERS Safety Report 21972618 (Version 1)
Quarter: 2023Q1

REPORT INFORMATION
  Report Type: Spontaneous
  Country: US (occurrence: US)
  Receive Date: 20230209
  Receipt Date: 20230209
  Transmission Date: 20230417
  Serious: Yes (Hospitalization, Other)
  Sender: FDA-Public Use
  Company Number: US-PFIZER INC-202300051761

PATIENT
  Age: 51 Year
  Sex: Female

DRUGS (1)
  1. AMPICILLIN SODIUM\SULBACTAM SODIUM [Suspect]
     Active Substance: AMPICILLIN SODIUM\SULBACTAM SODIUM
     Indication: Beta haemolytic streptococcal infection
     Dosage: UNK
     Route: 065

REACTIONS (2)
  - Joint effusion [Recovered/Resolved]
  - Oedema peripheral [Recovered/Resolved]
